FAERS Safety Report 10077645 (Version 3)
Quarter: 2015Q2

REPORT INFORMATION
  Report Type: Spontaneous
  Country: US (occurrence: US)
  Receive Date: 20140414
  Receipt Date: 20150408
  Transmission Date: 20150821
  Serious: No
  Sender: FDA-Public Use
  Company Number: US-BANPHARM-20142053

PATIENT
  Age: 68 Year
  Sex: Female
  Weight: 103.42 kg

DRUGS (5)
  1. ALEVE [Suspect]
     Active Substance: NAPROXEN SODIUM
     Indication: ARTHRITIS
     Dosage: ONCE DAILY,
     Route: 048
     Dates: start: 2014, end: 2014
  2. ASPIRIN 81 MG [Concomitant]
     Active Substance: ASPIRIN
  3. ALEVE [Concomitant]
     Active Substance: NAPROXEN SODIUM
     Dates: start: 2006
  4. VITAMINS [Concomitant]
     Active Substance: VITAMINS
  5. ALEVE [Suspect]
     Active Substance: NAPROXEN SODIUM
     Indication: ARTHRITIS
     Dosage: 1 DF, PRN,
     Route: 048
     Dates: start: 201312, end: 201401

REACTIONS (3)
  - Therapeutic response unexpected [Unknown]
  - Drug ineffective [Unknown]
  - Drug effect incomplete [Unknown]

NARRATIVE: CASE EVENT DATE: 201312
